FAERS Safety Report 9354644 (Version 2)
Quarter: 2013Q3

REPORT INFORMATION
  Report Type: Spontaneous
  Country: US (occurrence: US)
  Receive Date: 20130618
  Receipt Date: 20130710
  Transmission Date: 20140515
  Serious: Yes (Other)
  Sender: FDA-Public Use
  Company Number: US-ELI_LILLY_AND_COMPANY-US201306002909

PATIENT
  Sex: Male

DRUGS (3)
  1. FORTEO [Suspect]
     Indication: OSTEOPOROSIS
     Dosage: 20 UG, QD
     Dates: start: 201201
  2. COUMADIN [Concomitant]
     Dosage: 2.5-5 MG, QD
  3. FUROSEMIDE [Concomitant]
     Dosage: UNK, QD

REACTIONS (1)
  - Aortic valve stenosis [Unknown]
